FAERS Safety Report 8421626-4 (Version None)
Quarter: 2012Q2

REPORT INFORMATION
  Report Type: 
  Country: None (occurrence: None)
  Receive Date: 20120601
  Receipt Date: 20120516
  Transmission Date: 20120825
  Serious: Yes (Hospitalization)
  Sender: FDA-Public Use
  Company Number: 2012MA006434

PATIENT
  Age: 75 Year
  Sex: Male

DRUGS (7)
  1. FINASTERIDE [Concomitant]
  2. ALFUZOSIN HCL [Concomitant]
  3. WARFARIN SODIUM [Concomitant]
  4. OMEPRAZOLE [Concomitant]
  5. METFORMIN HCL [Concomitant]
  6. NAPROXEN [Suspect]
     Indication: PAIN
     Dosage: 250 MG, BID, PO
     Route: 048
     Dates: start: 20120426, end: 20120428
  7. SIMVASTATIN [Concomitant]

REACTIONS (3)
  - ANURIA [None]
  - CONTINUOUS HAEMODIAFILTRATION [None]
  - BLOOD CREATININE INCREASED [None]
